FAERS Safety Report 4477227-6 (Version None)
Quarter: 2004Q4

REPORT INFORMATION
  Report Type: 
  Country: None (occurrence: None)
  Receive Date: 20041013
  Receipt Date: 20040930
  Transmission Date: 20050328
  Serious: Yes (Life-Threatening, Hospitalization)
  Sender: FDA-Public Use
  Company Number: A01200404811

PATIENT
  Age: 61 Year
  Sex: Male

DRUGS (5)
  1. CLOPIDOGREL - TABLET - 75 MG [Suspect]
     Dosage: ORAL
     Route: 048
     Dates: start: 20010709, end: 20010712
  2. CELEBREX [Suspect]
     Dosage: 200 MG QD
     Dates: start: 20010709, end: 20010712
  3. CARDIZEM [Concomitant]
  4. ATORVASTATIN CALCIUM [Concomitant]
  5. OMEPRAZOLE [Concomitant]

REACTIONS (1)
  - STEVENS-JOHNSON SYNDROME [None]
